FAERS Safety Report 23044666 (Version 11)
Quarter: 2025Q3

REPORT INFORMATION
  Report Type: Report from Study
  Country: CA (occurrence: CA)
  Receive Date: 20231009
  Receipt Date: 20250912
  Transmission Date: 20251021
  Serious: Yes (Other)
  Sender: TAKEDA
  Company Number: CA-TAKEDA-2023TUS033690

PATIENT
  Age: 61 Year
  Sex: Female

DRUGS (7)
  1. VEDOLIZUMAB [Suspect]
     Active Substance: VEDOLIZUMAB
     Indication: Crohn^s disease
     Dosage: 108 MILLIGRAM, 1/WEEK
     Dates: start: 20211022
  2. NIFEDIPINE [Concomitant]
     Active Substance: NIFEDIPINE
     Indication: Hypertension
  3. NIFEDIPINE [Concomitant]
     Active Substance: NIFEDIPINE
     Indication: Bicuspid aortic valve
  4. RAMIPRIL [Concomitant]
     Active Substance: RAMIPRIL
     Indication: Hypertension
     Dosage: 10 MILLIGRAM, BID
  5. RAMIPRIL [Concomitant]
     Active Substance: RAMIPRIL
     Indication: Bicuspid aortic valve
  6. BISOPROLOL FUMARATE [Concomitant]
     Active Substance: BISOPROLOL FUMARATE
     Indication: Hypertension
  7. BISOPROLOL FUMARATE [Concomitant]
     Active Substance: BISOPROLOL FUMARATE
     Indication: Bicuspid aortic valve

REACTIONS (13)
  - Crohn^s disease [Unknown]
  - Abdominal hernia [Unknown]
  - Stress [Unknown]
  - Diarrhoea [Unknown]
  - Abdominal pain lower [Unknown]
  - Injection site bruising [Unknown]
  - Eye disorder [Unknown]
  - Mouth ulceration [Unknown]
  - Tooth infection [Unknown]
  - Off label use [Unknown]
  - Abdominal mass [Unknown]
  - Abdominal distension [Unknown]
  - Arthralgia [Unknown]

NARRATIVE: CASE EVENT DATE: 20211022
